FAERS Safety Report 7579336-1 (Version None)
Quarter: 2011Q2

REPORT INFORMATION
  Report Type: 
  Country: None (occurrence: None)
  Receive Date: 20110628
  Receipt Date: 20110623
  Transmission Date: 20111010
  Serious: Yes (Death, Hospitalization, Other)
  Sender: FDA-Public Use
  Company Number: US-CELGENEUS-163-21880-11033411

PATIENT
  Sex: Female

DRUGS (6)
  1. OXYCODONE HCL [Concomitant]
     Route: 065
  2. VELCADE [Concomitant]
     Route: 065
     Dates: start: 20100527, end: 20100830
  3. GABAPENTIN [Concomitant]
     Route: 065
  4. DEXAMETHASONE [Concomitant]
     Route: 065
  5. REVLIMID [Suspect]
     Dosage: 10 MILLIGRAM
     Route: 048
     Dates: start: 20110318, end: 20110325
  6. PROCHLORPERAZINE TAB [Concomitant]
     Route: 065

REACTIONS (2)
  - RENAL FAILURE [None]
  - MULTIPLE MYELOMA [None]
